FAERS Safety Report 14402320 (Version 1)
Quarter: 2018Q1

REPORT INFORMATION
  Report Type: Spontaneous
  Country: SA (occurrence: SA)
  Receive Date: 20180116
  Receipt Date: 20180116
  Transmission Date: 20180509
  Serious: Yes (Hospitalization)
  Sender: FDA-Public Use
  Company Number: None

PATIENT
  Age: 46 Year
  Sex: Male

DRUGS (1)
  1. VALPROIC ACID. [Suspect]
     Active Substance: VALPROIC ACID
     Indication: EPILEPSY
     Dates: start: 20170415, end: 20170504

REACTIONS (4)
  - Therapy cessation [None]
  - Respiratory failure [None]
  - Pseudomonas test positive [None]
  - Pancreatitis [None]

NARRATIVE: CASE EVENT DATE: 20170415
